FAERS Safety Report 6764991-6 (Version None)
Quarter: 2010Q2

REPORT INFORMATION
  Report Type: 
  Country: None (occurrence: None)
  Receive Date: 20100610
  Receipt Date: 20100607
  Transmission Date: 20101027
  Serious: Yes (Life-Threatening, Other)
  Sender: FDA-Public Use
  Company Number: PHHY2010DE16278

PATIENT
  Sex: Female

DRUGS (4)
  1. ACLASTA/ZOLEDRONATE T29581+A++OS [Suspect]
     Indication: OSTEOPOROSIS
     Dosage: 5MG/100ML ONCE YEARLY
     Route: 042
     Dates: start: 20100303, end: 20100303
  2. VITAMIN D [Concomitant]
     Indication: OSTEOPOROSIS
     Dosage: 800 UNK, UNK
  3. CALCIUM CARBONATE [Concomitant]
     Indication: OSTEOPOROSIS
     Dosage: 1000 MG, UNK
  4. NSAR [Concomitant]
     Indication: PROPHYLAXIS
     Dosage: 5 MG, ONCE YEARLY
     Route: 042
     Dates: start: 20100303, end: 20100304

REACTIONS (3)
  - CLAVICLE FRACTURE [None]
  - FALL [None]
  - SYNCOPE [None]
